FAERS Safety Report 5285021-1 (Version None)
Quarter: 2007Q2

REPORT INFORMATION
  Report Type: 
  Country: None (occurrence: None)
  Receive Date: 20070403
  Receipt Date: 20070323
  Transmission Date: 20071010
  Serious: Yes (Disabling)
  Sender: FDA-Public Use
  Company Number: GB-SANOFI-SYNTHELABO-A01200610288

PATIENT
  Age: 60 Year
  Sex: Female
  Weight: 58.7 kg

DRUGS (5)
  1. DOMPERIDONE [Concomitant]
     Indication: NAUSEA
     Dosage: UNK
  2. DEXAMETHASONE [Concomitant]
     Indication: NAUSEA
     Dosage: 4 MG TWICE DAILY FOR 2 DAYS AND THEN 4 MG ONCE DAILY
     Route: 048
  3. ONDANSETRON [Concomitant]
     Indication: NAUSEA
     Route: 048
  4. CAPECITABINE [Suspect]
     Dosage: 1500MG TWICE DAILY FOR 10 DAYS EVERY 2 WEEKS
     Route: 048
     Dates: start: 20060830, end: 20060830
  5. ELOXATIN [Suspect]
     Indication: COLON CANCER METASTATIC
     Route: 042
     Dates: start: 20060830, end: 20060830

REACTIONS (6)
  - BLINDNESS [None]
  - DIARRHOEA [None]
  - PALMAR-PLANTAR ERYTHRODYSAESTHESIA SYNDROME [None]
  - PAPILLITIS [None]
  - PARAESTHESIA [None]
  - UVEITIS [None]
